FAERS Safety Report 6356589-9 (Version None)
Quarter: 2009Q3

REPORT INFORMATION
  Report Type: 
  Country: None (occurrence: None)
  Receive Date: 20090911
  Receipt Date: 20090911
  Transmission Date: 20100115
  Serious: Yes (Other)
  Sender: FDA-Public Use
  Company Number: None

PATIENT
  Weight: 106.8 kg

DRUGS (1)
  1. XENICAL [Suspect]
     Indication: OBESITY
     Dates: start: 20010301, end: 20010901

REACTIONS (9)
  - AUTOIMMUNE HEPATITIS [None]
  - FATIGUE [None]
  - GALLBLADDER NON-FUNCTIONING [None]
  - HEPATIC CIRRHOSIS [None]
  - HEPATIC ENZYME INCREASED [None]
  - NAUSEA [None]
  - NEPHROLITHIASIS [None]
  - SPIDER VEIN [None]
  - WEIGHT DECREASED [None]
